FAERS Safety Report 25120248 (Version 1)
Quarter: 2025Q1

REPORT INFORMATION
  Report Type: Spontaneous
  Country: US (occurrence: None)
  Receive Date: 20250325
  Receipt Date: 20250325
  Transmission Date: 20250409
  Serious: Yes (Life-Threatening, Hospitalization)
  Sender: FDA-CTU
  Company Number: None

PATIENT
  Age: 79 Year
  Sex: Male
  Weight: 85.5 kg

DRUGS (2)
  1. CEFTRIAXONE [Suspect]
     Active Substance: CEFTRIAXONE
     Indication: Urinary tract infection
     Route: 041
     Dates: start: 20250121, end: 20250121
  2. APIXABAN [Suspect]
     Active Substance: APIXABAN

REACTIONS (14)
  - Anaemia [None]
  - Leukopenia [None]
  - Acute kidney injury [None]
  - Urinary tract infection [None]
  - Haematuria [None]
  - Thrombosis [None]
  - Unresponsive to stimuli [None]
  - Pulseless electrical activity [None]
  - Nausea [None]
  - Dizziness [None]
  - Tryptase increased [None]
  - Abdominal pain [None]
  - Hypotension [None]
  - Dyspnoea [None]

NARRATIVE: CASE EVENT DATE: 20250121
